FAERS Safety Report 5893178-4 (Version None)
Quarter: 2008Q3

REPORT INFORMATION
  Report Type: 
  Country: None (occurrence: None)
  Receive Date: 20080923
  Receipt Date: 20070716
  Transmission Date: 20090109
  Serious: No
  Sender: FDA-Public Use
  Company Number: US-ASTRAZENECA-2007UW16885

PATIENT
  Age: 63 Year
  Sex: Male
  Weight: 69.9 kg

DRUGS (3)
  1. SEROQUEL [Suspect]
  2. HYPERTENSION PILLS [Concomitant]
  3. BLADDER PILLS [Concomitant]

REACTIONS (2)
  - DRY MOUTH [None]
  - THROAT IRRITATION [None]
